FAERS Safety Report 23569966 (Version 1)
Quarter: 2024Q1

REPORT INFORMATION
  Report Type: Spontaneous
  Country: US (occurrence: US)
  Receive Date: 20240227
  Receipt Date: 20240227
  Transmission Date: 20240409
  Serious: No
  Sender: FDA-Public Use
  Company Number: US-Sunshine Lake Pharma Co, Ltd.-2153717

PATIENT
  Sex: Male

DRUGS (2)
  1. ENTACAPONE [Suspect]
     Active Substance: ENTACAPONE
  2. carbalobalovadoda [Concomitant]

REACTIONS (3)
  - Tremor [Unknown]
  - Drug interaction [Unknown]
  - Hyperhidrosis [Unknown]
